FAERS Safety Report 9922318 (Version 1)
Quarter: 2014Q1

REPORT INFORMATION
  Report Type: Spontaneous
  Country: US (occurrence: None)
  Receive Date: 20140224
  Receipt Date: 20140224
  Transmission Date: 20141002
  Serious: No
  Sender: FDA-Public Use
  Company Number: None

PATIENT
  Sex: Female
  Weight: 74.39 kg

DRUGS (8)
  1. SULFASALAZINE [Suspect]
     Indication: COLITIS
     Dosage: 2 TABLETS 4 TIMES A DAY BY MOUTH
     Route: 048
     Dates: start: 1980, end: 201307
  2. OMEPRAZOLE [Concomitant]
  3. POTASSIUM [Concomitant]
  4. LOPRAZOLAM [Concomitant]
  5. SIMVASTATIN [Concomitant]
  6. SETRALINE [Concomitant]
  7. FUROSEMIDE [Concomitant]
  8. FISH OIL [Concomitant]

REACTIONS (3)
  - Activities of daily living impaired [None]
  - Interstitial lung disease [None]
  - Gait disturbance [None]
